FAERS Safety Report 12239419 (Version 1)
Quarter: 2016Q2

REPORT INFORMATION
  Report Type: Spontaneous
  Country: US (occurrence: US)
  Receive Date: 20160405
  Receipt Date: 20160405
  Transmission Date: 20160815
  Serious: Yes (Other)
  Sender: FDA-Public Use
  Company Number: US-APOTEX-2016AP007033

PATIENT
  Age: 39 Year
  Sex: Female

DRUGS (2)
  1. LABETALOL HYDROCHLORIDE INJECTION USP [Suspect]
     Active Substance: LABETALOL HYDROCHLORIDE
     Dosage: MAXIMAL DOSE OF 2 MG/MIN
     Route: 041
  2. LABETALOL HYDROCHLORIDE INJECTION USP [Suspect]
     Active Substance: LABETALOL HYDROCHLORIDE
     Indication: AORTIC DISSECTION
     Dosage: UNK
     Route: 041

REACTIONS (3)
  - Bradycardia [Unknown]
  - Foetal distress syndrome [Unknown]
  - Exposure during pregnancy [Unknown]
